FAERS Safety Report 9642200 (Version 3)
Quarter: 2013Q4

REPORT INFORMATION
  Report Type: Spontaneous
  Country: IT (occurrence: IT)
  Receive Date: 20131024
  Receipt Date: 20131227
  Transmission Date: 20140711
  Serious: Yes (Hospitalization)
  Sender: FDA-Public Use
  Company Number: PHHY2013IT115060

PATIENT
  Age: 89 Year
  Sex: Female

DRUGS (4)
  1. SINTROM [Suspect]
     Indication: ATRIAL FIBRILLATION
     Dosage: 12 MG (1MG), WEEKLY
     Route: 048
     Dates: start: 20131001, end: 20131001
  2. IBUPROFEN SANDOZ [Suspect]
     Dosage: 600 MG, DAILY
     Route: 048
     Dates: start: 20130925, end: 20131001
  3. DILTIAZEM [Concomitant]
     Dosage: 180 MG, UNK
     Route: 048
  4. ENALAPRIL [Concomitant]
     Dosage: 5 MG, UNK
     Route: 048

REACTIONS (2)
  - Anaemia macrocytic [Recovering/Resolving]
  - International normalised ratio increased [Recovering/Resolving]
